FAERS Safety Report 14336495 (Version 1)
Quarter: 2017Q4

REPORT INFORMATION
  Report Type: Spontaneous
  Country: IT (occurrence: IT)
  Receive Date: 20171229
  Receipt Date: 20171229
  Transmission Date: 20180321
  Serious: Yes (Death, Hospitalization, Other)
  Sender: FDA-Public Use
  Company Number: IT-AUROBINDO-AUR-APL-2017-47734

PATIENT
  Age: 82 Year
  Sex: Female

DRUGS (10)
  1. VANCOMYCIN [Concomitant]
     Active Substance: VANCOMYCIN
     Indication: STAPHYLOCOCCAL INFECTION
     Dosage: LOADING DOSE
     Route: 042
     Dates: start: 2015
  2. VANCOMYCIN [Concomitant]
     Active Substance: VANCOMYCIN
     Indication: STAPHYLOCOCCAL INFECTION
     Dosage: UNK
     Route: 061
     Dates: start: 2015
  3. FENTANYL. [Interacting]
     Active Substance: FENTANYL
     Indication: PROCEDURAL PAIN
     Dosage: 100 ?G, UNK
     Route: 065
     Dates: start: 2015, end: 20150602
  4. FENTANYL. [Interacting]
     Active Substance: FENTANYL
     Indication: PROCEDURAL PAIN
     Dosage: 25 ?G, UNK
     Route: 062
     Dates: start: 20150528, end: 20150602
  5. LEVOFLOXACIN. [Suspect]
     Active Substance: LEVOFLOXACIN
     Indication: STAPHYLOCOCCAL INFECTION
     Dosage: 125 MG, MAINTENANCE DOSE
     Route: 048
     Dates: start: 2015
  6. LEVOFLOXACIN. [Interacting]
     Active Substance: LEVOFLOXACIN
     Dosage: 500 UNK, LOADING DOSE
     Route: 048
     Dates: start: 2015
  7. FENTANYL. [Interacting]
     Active Substance: FENTANYL
     Indication: ISCHAEMIC LIMB PAIN
     Dosage: 200 ?G, UNK
     Route: 065
     Dates: start: 2015, end: 20150602
  8. RIFAMPICIN [Interacting]
     Active Substance: RIFAMPIN
     Indication: PRODUCT USED FOR UNKNOWN INDICATION
     Dosage: 300 MG, ONCE A DAY
     Route: 065
     Dates: start: 2015
  9. VANCOMYCIN [Concomitant]
     Active Substance: VANCOMYCIN
     Dosage: MAINTENANCE DOSE; AT THE END OF DIALYSIS
     Route: 042
     Dates: start: 2015
  10. FENTANYL. [Interacting]
     Active Substance: FENTANYL
     Indication: ISCHAEMIC LIMB PAIN
     Dosage: 12 ?G, UNK
     Route: 062
     Dates: start: 20150521, end: 20150528

REACTIONS (10)
  - Toxicity to various agents [Unknown]
  - Altered state of consciousness [Recovering/Resolving]
  - Therapy naive [Unknown]
  - Sopor [Recovered/Resolved]
  - Hallucination [Unknown]
  - Status epilepticus [Recovered/Resolved]
  - Overdose [Unknown]
  - Tremor [Unknown]
  - Drug interaction [Unknown]
  - Miosis [Unknown]

NARRATIVE: CASE EVENT DATE: 20150602
